FAERS Safety Report 9133757 (Version 1)
Quarter: 2013Q1

REPORT INFORMATION
  Report Type: Spontaneous
  Country: NO (occurrence: NO)
  Receive Date: 20130302
  Receipt Date: 20130302
  Transmission Date: 20140127
  Serious: Yes (Hospitalization)
  Sender: FDA-Public Use
  Company Number: NO-TEVA-388233ISR

PATIENT
  Sex: Female

DRUGS (3)
  1. CITALOPRAM [Suspect]
     Indication: DEPRESSION
     Dosage: 30 MILLIGRAM DAILY;
     Route: 048
     Dates: start: 2000, end: 201212
  2. SERETIDE [Concomitant]
     Indication: ASTHMA
     Route: 055
  3. TOLVON [Concomitant]
     Indication: INSOMNIA
     Route: 048

REACTIONS (1)
  - Accommodation disorder [Recovering/Resolving]
